FAERS Safety Report 20379962 (Version 2)
Quarter: 2022Q1

REPORT INFORMATION
  Report Type: Report from Study
  Country: US (occurrence: US)
  Receive Date: 20220126
  Receipt Date: 20220208
  Transmission Date: 20220423
  Serious: Yes (Hospitalization)
  Sender: FDA-Public Use
  Company Number: US-ABBVIE-22P-163-4250756-00

PATIENT
  Age: 57 Year
  Sex: Male

DRUGS (3)
  1. VENETOCLAX [Suspect]
     Active Substance: VENETOCLAX
     Indication: Acute myeloid leukaemia
     Dosage: ON DAYS 1 TO 21, LAST DOSE PRIOR TO SAE 16 JAN 2022
     Route: 048
  2. MAGROLIMAB (MONOCLONAL ANTIBODIES) [Concomitant]
     Indication: Acute myeloid leukaemia
     Dosage: ON DAYS 1, 8, 15 AND 22. LAST DOSE PRIOR TO SAE 11 JAN 2022
     Route: 065
  3. AZACITIDINE [Concomitant]
     Active Substance: AZACITIDINE
     Indication: Acute myeloid leukaemia
     Dosage: ON DAYS 1 TO 7, LAST DOSE PRIOR TO SAE: 03 JAN 2022
     Route: 065

REACTIONS (1)
  - Soft tissue infection [Recovered/Resolved]

NARRATIVE: CASE EVENT DATE: 20220117
